FAERS Safety Report 7422620-2 (Version None)
Quarter: 2011Q2

REPORT INFORMATION
  Report Type: 
  Country: None (occurrence: None)
  Receive Date: 20110407
  Receipt Date: 20110329
  Transmission Date: 20111010
  Serious: Yes (Hospitalization)
  Sender: FDA-Public Use
  Company Number: UTC-005985

PATIENT
  Age: 75 Year
  Sex: Female
  Weight: 75 kg

DRUGS (6)
  1. TYVASO [Suspect]
     Indication: PULMONARY ARTERIAL HYPERTENSION
     Dosage: 192 MCG ( 48 MCG,4 IN 1 D), INHALATION
     Route: 055
     Dates: start: 20110314
  2. DIURETICS (DIURETICS) [Concomitant]
  3. COUMADIN [Concomitant]
  4. REVATIO [Concomitant]
  5. NORVASC (AMLODIPINE BEDILATE) [Concomitant]
  6. ENALAPRIL MALEATE [Concomitant]

REACTIONS (8)
  - ASTHENIA [None]
  - DYSPNOEA [None]
  - DIZZINESS [None]
  - COUGH [None]
  - PAIN IN JAW [None]
  - HEADACHE [None]
  - NAUSEA [None]
  - DIARRHOEA [None]
